FAERS Safety Report 4979010-1 (Version None)
Quarter: 2006Q2

REPORT INFORMATION
  Report Type: 
  Country: None (occurrence: None)
  Receive Date: 20060419
  Receipt Date: 20060419
  Transmission Date: 20061013
  Serious: Yes (Other)
  Sender: FDA-Public Use
  Company Number: None

PATIENT
  Age: 85 Year
  Sex: Male
  Weight: 61.7 kg

DRUGS (2)
  1. VANCOMYCIN [Suspect]
  2. FELODIPINE [Concomitant]

REACTIONS (1)
  - RASH [None]
